FAERS Safety Report 10930952 (Version 1)
Quarter: 2015Q1

REPORT INFORMATION
  Report Type: Spontaneous
  Country: US (occurrence: None)
  Receive Date: 20150318
  Receipt Date: 20150318
  Transmission Date: 20150721
  Serious: Yes (Death, Hospitalization)
  Sender: FDA-Public Use
  Company Number: None

PATIENT
  Sex: Male
  Weight: 66.8 kg

DRUGS (19)
  1. BENONATATE [Concomitant]
  2. FOLIC ACID. [Concomitant]
     Active Substance: FOLIC ACID
  3. FOLIC ACID. [Concomitant]
     Active Substance: FOLIC ACID
  4. POTASSIUM [Concomitant]
     Active Substance: POTASSIUM
  5. FERROUS SULFATE [Concomitant]
     Active Substance: FERROUS SULFATE\FERROUS SULFATE, DRIED
  6. SIMEPRAVIR [Suspect]
     Active Substance: SIMEPREVIR
     Indication: HEPATITIS C
     Route: 048
     Dates: start: 20141105, end: 20150228
  7. LACTULOSE. [Concomitant]
     Active Substance: LACTULOSE
  8. LISINOPRIL. [Concomitant]
     Active Substance: LISINOPRIL
  9. FERROUS SULFATE [Concomitant]
     Active Substance: FERROUS SULFATE\FERROUS SULFATE, DRIED
  10. ADACTONE [Concomitant]
  11. WARFARIN [Concomitant]
     Active Substance: WARFARIN
  12. SOFOSBUVIR [Suspect]
     Active Substance: SOFOSBUVIR
     Indication: HEPATITIS C
     Route: 048
     Dates: start: 20141105, end: 20150228
  13. ASPIRIN. [Concomitant]
     Active Substance: ASPIRIN
  14. FUROSEMIDE. [Concomitant]
     Active Substance: FUROSEMIDE
  15. MATHOCARBAMOL [Concomitant]
  16. BACTRIM [Concomitant]
     Active Substance: SULFAMETHOXAZOLE\TRIMETHOPRIM
  17. COUMADIN [Concomitant]
     Active Substance: WARFARIN SODIUM
  18. SOTALOL. [Concomitant]
     Active Substance: SOTALOL
  19. GABAPENTIN. [Concomitant]
     Active Substance: GABAPENTIN

REACTIONS (6)
  - Dyspnoea [None]
  - Anaemia [None]
  - Atrial fibrillation [None]
  - Mental status changes [None]
  - Cardiac arrest [None]
  - General physical health deterioration [None]

NARRATIVE: CASE EVENT DATE: 20150228
